FAERS Safety Report 12846984 (Version 1)
Quarter: 2016Q4

REPORT INFORMATION
  Report Type: Spontaneous
  Country: US (occurrence: US)
  Receive Date: 20161013
  Receipt Date: 20161013
  Transmission Date: 20170207
  Serious: Yes (Other)
  Sender: FDA-Public Use
  Company Number: None

PATIENT
  Age: 51 Year
  Sex: Female
  Weight: 82.17 kg

DRUGS (12)
  1. HARVONI [Suspect]
     Active Substance: LEDIPASVIR\SOFOSBUVIR
     Indication: CHRONIC HEPATITIS C
     Route: 048
  2. PIMECROLIMUS TOPICAL CREAM [Concomitant]
  3. HYDROCHLOROTHIAZIDE. [Concomitant]
     Active Substance: HYDROCHLOROTHIAZIDE
  4. EPIPEN [Concomitant]
     Active Substance: EPINEPHRINE
  5. PREDNISONE. [Concomitant]
     Active Substance: PREDNISONE
  6. ZYRTEC [Concomitant]
     Active Substance: CETIRIZINE HYDROCHLORIDE
  7. DESOXIMETASONE TOPICAL OINTMENT [Concomitant]
  8. ALPRAZOLAM. [Concomitant]
     Active Substance: ALPRAZOLAM
  9. PROVENTIL HFA [Concomitant]
     Active Substance: ALBUTEROL SULFATE
  10. MONTELUKAST [Concomitant]
     Active Substance: MONTELUKAST SODIUM
  11. ADVIAR DISKUS [Concomitant]
  12. IPRATROPIUM/ALBUTEROL [Concomitant]
     Active Substance: ALBUTEROL\IPRATROPIUM

REACTIONS (1)
  - Alopecia [None]

NARRATIVE: CASE EVENT DATE: 20161013
